FAERS Safety Report 7882688-6 (Version None)
Quarter: 2011Q4

REPORT INFORMATION
  Report Type: 
  Country: None (occurrence: None)
  Receive Date: 20111101
  Receipt Date: 20110619
  Transmission Date: 20120403
  Serious: No
  Sender: FDA-Public Use
  Company Number: US-AMGEN-USASP2011031291

PATIENT
  Age: 62 Year
  Sex: Female

DRUGS (1)
  1. ENBREL [Suspect]
     Indication: RHEUMATOID ARTHRITIS
     Dosage: 50 MG, QWK
     Dates: start: 20060630

REACTIONS (5)
  - PNEUMONIA [None]
  - GINGIVAL RECESSION [None]
  - SCLERODERMA [None]
  - BRONCHITIS [None]
  - PRODUCTIVE COUGH [None]
